FAERS Safety Report 13099170 (Version 1)
Quarter: 2017Q1

REPORT INFORMATION
  Report Type: Report from Study
  Country: US (occurrence: US)
  Receive Date: 20170109
  Receipt Date: 20170109
  Transmission Date: 20170428
  Serious: No
  Sender: FDA-Public Use
  Company Number: US-JNJFOC-20161018881

PATIENT
  Age: 48 Year
  Sex: Male
  Weight: 136.08 kg

DRUGS (2)
  1. STELARA [Suspect]
     Active Substance: USTEKINUMAB
     Indication: PSORIASIS
     Route: 058
     Dates: start: 2009
  2. TRIAMCINOLONE [Concomitant]
     Active Substance: TRIAMCINOLONE
     Indication: PSORIASIS
     Route: 061

REACTIONS (3)
  - Psoriasis [Not Recovered/Not Resolved]
  - Underdose [Unknown]
  - Syringe issue [Unknown]

NARRATIVE: CASE EVENT DATE: 20161020
